FAERS Safety Report 9844786 (Version 1)
Quarter: 2014Q1

REPORT INFORMATION
  Report Type: Spontaneous
  Country: IT (occurrence: None)
  Receive Date: 20140122
  Receipt Date: 20140122
  Transmission Date: 20141002
  Serious: Yes (Hospitalization)
  Sender: FDA-Public Use
  Company Number: 2014AP000269

PATIENT
  Age: 77 Year
  Sex: Female

DRUGS (4)
  1. LEVOFLOXACIN [Suspect]
     Indication: BRONCHOPNEUMONIA
     Route: 048
     Dates: start: 20131212, end: 20131226
  2. COUMADIN (COUMADIN) [Concomitant]
  3. CLARITHROMYCIN (CLARITHROMYCIN) [Suspect]
     Indication: BRONCHOPNEUMONIA
     Route: 048
     Dates: start: 20131223, end: 20131226
  4. WARFARIN SODIUM (WARFARIN SODIUM) [Suspect]
     Indication: ATRIAL FIBRILLATION
     Route: 048
     Dates: start: 20100725, end: 20131226

REACTIONS (3)
  - Drug interaction [None]
  - Hypocoagulable state [None]
  - Bronchopneumonia [None]
